FAERS Safety Report 17735966 (Version 1)
Quarter: 2020Q2

REPORT INFORMATION
  Report Type: Report from Study
  Country: US (occurrence: US)
  Receive Date: 20200501
  Receipt Date: 20200501
  Transmission Date: 20200714
  Serious: Yes (Hospitalization)
  Sender: FDA-Public Use
  Company Number: US-EISAI MEDICAL RESEARCH-EC-2020-070744

PATIENT
  Age: 69 Year
  Sex: Male

DRUGS (3)
  1. LENVIMA [Suspect]
     Active Substance: LENVATINIB
     Indication: HEPATOCELLULAR CARCINOMA
     Dosage: ONE MISSED DOSE
     Route: 048
     Dates: start: 20200204, end: 202004
  2. GABAPENTIN. [Suspect]
     Active Substance: GABAPENTIN
  3. DURAGESIC [Concomitant]
     Active Substance: FENTANYL

REACTIONS (17)
  - Fatigue [Not Recovered/Not Resolved]
  - Nausea [Recovered/Resolved]
  - Blood pressure decreased [Recovered/Resolved]
  - Taste disorder [Not Recovered/Not Resolved]
  - Constipation [Recovering/Resolving]
  - Confusional state [Unknown]
  - Weight decreased [Not Recovered/Not Resolved]
  - Pain in extremity [Not Recovered/Not Resolved]
  - Balance disorder [Not Recovered/Not Resolved]
  - Vomiting [Recovered/Resolved]
  - Tremor [Not Recovered/Not Resolved]
  - Headache [Unknown]
  - Asthenia [Unknown]
  - Dry skin [Not Recovered/Not Resolved]
  - Dysphonia [Not Recovered/Not Resolved]
  - Blood pressure increased [Recovering/Resolving]
  - Gingival pain [Not Recovered/Not Resolved]

NARRATIVE: CASE EVENT DATE: 202002
